FAERS Safety Report 9979634 (Version 2)
Quarter: 2014Q1

REPORT INFORMATION
  Report Type: Report from Study
  Country: US (occurrence: US)
  Receive Date: 20140306
  Receipt Date: 20140306
  Transmission Date: 20141002
  Serious: No
  Sender: FDA-Public Use
  Company Number: US-ABBVIE-13P-163-1153062-00

PATIENT
  Age: 42 Year
  Sex: Female

DRUGS (13)
  1. HUMIRA [Suspect]
     Indication: COLITIS ULCERATIVE
     Dosage: 160MG LOADING DOSE
     Dates: start: 20130918, end: 20130918
  2. HUMIRA [Suspect]
     Dosage: ONCE
     Dates: start: 20131003, end: 20131011
  3. LEVOTHYROXINE [Concomitant]
     Indication: THYROID FUNCTION TEST ABNORMAL
     Dosage: 50MCG DAILY
  4. LEVOTHYROXINE [Concomitant]
     Indication: HYPOTHYROIDISM
  5. BUDESONIDE [Concomitant]
     Indication: COLITIS ULCERATIVE
     Dosage: 6MG DAILY
  6. VITAMIN B12 (CYANOCOBALAMIN AND ANALOGUES) [Concomitant]
     Indication: VITAMIN B12 DECREASED
  7. ORTHO TRI-CYCLEN [Concomitant]
     Indication: CONTRACEPTION
     Dosage: DAILY
  8. APRISO [Concomitant]
     Indication: COLITIS ULCERATIVE
  9. CYANOCOBALAMINE [Concomitant]
     Indication: VITAMIN SUPPLEMENTATION
  10. MULTIVITAMIN [Concomitant]
     Indication: VITAMIN SUPPLEMENTATION
  11. CALCIUM + VITAMIN D [Concomitant]
     Indication: VITAMIN SUPPLEMENTATION
  12. CALCIUM + VITAMIN D [Concomitant]
     Indication: MINERAL SUPPLEMENTATION
  13. CLARITIN [Concomitant]
     Indication: SEASONAL ALLERGY

REACTIONS (8)
  - Butterfly rash [Recovered/Resolved]
  - Injection site erythema [Not Recovered/Not Resolved]
  - Injection site urticaria [Recovered/Resolved]
  - Rash [Recovered/Resolved]
  - Urticaria [Not Recovered/Not Resolved]
  - Rash [Not Recovered/Not Resolved]
  - Rash [Not Recovered/Not Resolved]
  - Rosacea [Not Recovered/Not Resolved]
